FAERS Safety Report 9249735 (Version 4)
Quarter: 2013Q3

REPORT INFORMATION
  Report Type: Report from Study
  Country: US (occurrence: US)
  Receive Date: 20130423
  Receipt Date: 20130822
  Transmission Date: 20140515
  Serious: Yes (Hospitalization)
  Sender: FDA-Public Use
  Company Number: US-ACTELION-A-US2013-82077

PATIENT
  Age: 65 Year
  Sex: Female

DRUGS (4)
  1. TRACLEER [Suspect]
     Indication: PULMONARY ARTERIAL HYPERTENSION
     Dosage: UNK
     Route: 048
  2. ADCIRCA [Concomitant]
  3. ASA [Concomitant]
     Dosage: 81 MG, UNK
  4. SPIRONOLACTONE [Concomitant]

REACTIONS (4)
  - Liver transplant [Recovering/Resolving]
  - Gastrointestinal haemorrhage [Recovering/Resolving]
  - Fistula [Recovering/Resolving]
  - Haemoglobin decreased [Not Recovered/Not Resolved]
